FAERS Safety Report 4952307-7 (Version None)
Quarter: 2006Q1

REPORT INFORMATION
  Report Type: 
  Country: None (occurrence: None)
  Receive Date: 20060320
  Receipt Date: 20060308
  Transmission Date: 20060701
  Serious: Yes (Other)
  Sender: FDA-Public Use
  Company Number: 222979

PATIENT
  Age: 69 Year
  Sex: Male
  Weight: 75 kg

DRUGS (6)
  1. AVASTIN(BEVACIZUMAB) PWDR + SOLVENT,INFUSION SOLN, 100MG [Suspect]
     Indication: ADENOCARCINOMA PANCREAS
     Dosage: 750 MG, DAYS 1+15, INTRAVENOUS
     Route: 042
     Dates: start: 20060207, end: 20060302
  2. GEMCITABINE [Suspect]
     Indication: ADENOCARCINOMA PANCREAS
     Dosage: 1900 MG, DAYS 1 + 15, INTRAVENOUS
     Route: 042
     Dates: start: 20060207, end: 20060302
  3. MULTIVITAMIN (MULTIVITAMIN) [Concomitant]
  4. PERCOCET [Concomitant]
  5. COMPAZINE [Concomitant]
  6. OXALIPLATIN (OXALIPLATIN) [Suspect]
     Indication: ADENOCARCINOMA PANCREAS
     Dosage: 190 MG, INTRAVENOUS
     Route: 042
     Dates: start: 20060208, end: 20060302

REACTIONS (1)
  - BLOOD ALKALINE PHOSPHATASE INCREASED [None]
